FAERS Safety Report 5587796-0 (Version None)
Quarter: 2007Q4

REPORT INFORMATION
  Report Type: 
  Country: None (occurrence: None)
  Receive Date: 20071211
  Receipt Date: 20071024
  Transmission Date: 20080405
  Serious: No
  Sender: FDA-Public Use
  Company Number: 002#1#2007-00278

PATIENT
  Sex: Female

DRUGS (3)
  1. NEUPRO [Suspect]
     Indication: DRUG USE FOR UNKNOWN INDICATION
     Dosage: 4MG/24H,1 IN 1 D,TRANSDERMAL
     Route: 062
     Dates: start: 20070101
  2. NASAL PREDNISONE INHALER SPRA [Concomitant]
  3. ALOE [Concomitant]

REACTIONS (3)
  - BLISTER [None]
  - ERYTHEMA [None]
  - URTICARIA [None]
